FAERS Safety Report 9718693 (Version 1)
Quarter: 2013Q4

REPORT INFORMATION
  Report Type: Spontaneous
  Country: US (occurrence: None)
  Receive Date: 20131125
  Receipt Date: 20131125
  Transmission Date: 20140711
  Serious: Yes (Hospitalization)
  Sender: FDA-Public Use
  Company Number: 20130114

PATIENT
  Age: 59 Year
  Sex: Female

DRUGS (2)
  1. SUBSYS [Suspect]
     Indication: NEPHROLITHIASIS
     Route: 060
     Dates: start: 20131029
  2. SUBSYS [Suspect]
     Indication: RENAL PAIN
     Route: 060
     Dates: start: 20131029

REACTIONS (1)
  - Investigation [None]
